FAERS Safety Report 5601140-1 (Version None)
Quarter: 2008Q1

REPORT INFORMATION
  Report Type: 
  Country: None (occurrence: None)
  Receive Date: 20080124
  Receipt Date: 20080118
  Transmission Date: 20080703
  Serious: Yes (Hospitalization)
  Sender: FDA-Public Use
  Company Number: HQWYE623522NOV04

PATIENT
  Sex: Male
  Weight: 69 kg

DRUGS (4)
  1. SIROLIMUS [Suspect]
     Indication: PROPHYLAXIS AGAINST TRANSPLANT REJECTION
     Route: 048
     Dates: start: 20040920
  2. URSODIOL [Concomitant]
     Indication: BILE OUTPUT ABNORMAL
     Route: 048
     Dates: start: 20040203
  3. METOPROLOL SUCCINATE [Concomitant]
     Indication: HYPOTENSION
     Dosage: ^142  5 MG TOTAL DAILY DOSE^
     Route: 048
     Dates: start: 20040311
  4. CELLCEPT [Concomitant]
     Indication: PROPHYLAXIS AGAINST TRANSPLANT REJECTION
     Route: 048
     Dates: start: 20040909

REACTIONS (2)
  - HEPATITIS C VIRUS [None]
  - LIVER TRANSPLANT REJECTION [None]
